FAERS Safety Report 7602890-8 (Version None)
Quarter: 2011Q2

REPORT INFORMATION
  Report Type: 
  Country: None (occurrence: None)
  Receive Date: 20110630
  Receipt Date: 20110621
  Transmission Date: 20111010
  Serious: Yes (Hospitalization)
  Sender: FDA-Public Use
  Company Number: 2011002245

PATIENT
  Age: 60 Year
  Sex: Male
  Weight: 90 kg

DRUGS (15)
  1. MIRTAZAPINE [Concomitant]
  2. SLOW-K [Concomitant]
  3. ALLOPUINOL (ALLOPURINOL) [Concomitant]
  4. CAPTOPRIL/HYDROCHLOROTHIAZIDE (CAPTOPRIL/HYDROCHLOROTHIAZIDE) [Concomitant]
  5. PANTOPRAZOL (PANTOPRAZOLE) [Concomitant]
  6. SERETIDE (SERETIDE) [Concomitant]
  7. SPIRIVA [Concomitant]
  8. FUROSEMIDE [Concomitant]
  9. AUGMENTIN '125' [Concomitant]
  10. CIPROFLOXACIN [Concomitant]
  11. PREDNISONE [Concomitant]
  12. OXYCODONE HCL [Concomitant]
  13. ERLOTINIB HYDROCHLORIDE [Suspect]
     Indication: NON-SMALL CELL LUNG CANCER
     Dosage: 50 MG, UNKNOWN/D, ORAL
     Route: 048
     Dates: start: 20110121
  14. CODEINE SULFATE [Concomitant]
  15. BEPANTHENE (DEXPANTHENOL) [Concomitant]

REACTIONS (8)
  - FISTULA [None]
  - DYSPNOEA [None]
  - HAEMATOCRIT DECREASED [None]
  - BLOOD POTASSIUM DECREASED [None]
  - HAEMOGLOBIN DECREASED [None]
  - OESOPHAGEAL FISTULA [None]
  - COUGH [None]
  - TACHYCARDIA [None]
